FAERS Safety Report 5955515-1 (Version None)
Quarter: 2008Q4

REPORT INFORMATION
  Report Type: 
  Country: None (occurrence: None)
  Receive Date: 20081117
  Receipt Date: 20081107
  Transmission Date: 20090506
  Serious: Yes (Other)
  Sender: FDA-Public Use
  Company Number: FR-SANOFI-SYNTHELABO-A02200803377

PATIENT
  Age: 85 Year
  Sex: Male

DRUGS (3)
  1. ASPEGIC 325 [Suspect]
     Indication: CARDIOMYOPATHY
     Route: 048
     Dates: start: 19980101, end: 20080101
  2. PLAVIX [Suspect]
     Indication: CARDIOMYOPATHY
     Route: 048
     Dates: start: 19980101, end: 20080101
  3. EFFEXOR [Concomitant]
     Indication: DRUG USE FOR UNKNOWN INDICATION
     Dosage: UNK
     Route: 048

REACTIONS (2)
  - LYMPHOCYTOSIS [None]
  - THROMBOCYTOPENIA [None]
